FAERS Safety Report 7058884-7 (Version None)
Quarter: 2010Q4

REPORT INFORMATION
  Report Type: 
  Country: None (occurrence: None)
  Receive Date: 20101022
  Receipt Date: 20101012
  Transmission Date: 20110411
  Serious: Yes (Hospitalization)
  Sender: FDA-Public Use
  Company Number: US-AMGEN INC.-KDL445143

PATIENT

DRUGS (10)
  1. ENBREL [Suspect]
     Indication: PRODUCT USED FOR UNKNOWN INDICATION
     Dosage: 100 MG, QWK
     Dates: end: 20101012
  2. PREDNISONE [Concomitant]
     Dosage: 5 MG, QD
  3. OMEPRAZOLE [Concomitant]
  4. SIMVASTATIN [Concomitant]
  5. CARVEDILOL [Concomitant]
  6. LISINOPRIL [Concomitant]
  7. MODAFINIL [Concomitant]
  8. SERTRALINE HYDROCHLORIDE [Concomitant]
  9. METFORMIN HYDROCHLORIDE [Concomitant]
  10. LORAZEPAM [Concomitant]

REACTIONS (4)
  - CORONARY ARTERY BYPASS [None]
  - OPEN WOUND [None]
  - POSTOPERATIVE WOUND COMPLICATION [None]
  - WOUND INFECTION STAPHYLOCOCCAL [None]
